FAERS Safety Report 16031069 (Version 5)
Quarter: 2019Q3

REPORT INFORMATION
  Report Type: Spontaneous
  Country: US (occurrence: US)
  Receive Date: 20190304
  Receipt Date: 20190725
  Transmission Date: 20191004
  Serious: Yes (Other)
  Sender: FDA-Public Use
  Company Number: US-ASTRAZENECA-2018SF26757

PATIENT
  Age: 27383 Day
  Sex: Female
  Weight: 87.5 kg

DRUGS (36)
  1. NEXIUM 24HR [Suspect]
     Active Substance: ESOMEPRAZOLE MAGNESIUM
     Indication: GASTROOESOPHAGEAL REFLUX DISEASE
     Route: 048
  2. NEXIUM 24HR [Suspect]
     Active Substance: ESOMEPRAZOLE MAGNESIUM
     Indication: GASTROOESOPHAGEAL REFLUX DISEASE
     Route: 048
  3. PRILOSEC OTC [Suspect]
     Active Substance: OMEPRAZOLE MAGNESIUM
     Indication: GASTROOESOPHAGEAL REFLUX DISEASE
     Route: 048
     Dates: start: 20100101, end: 20141231
  4. PREVACID [Suspect]
     Active Substance: LANSOPRAZOLE
     Route: 065
  5. PREVACID 24 HR [Suspect]
     Active Substance: LANSOPRAZOLE
     Indication: GASTROOESOPHAGEAL REFLUX DISEASE
     Route: 065
     Dates: start: 20100101, end: 20141231
  6. ZOSTAVAX [Concomitant]
     Active Substance: VARICELLA-ZOSTER VIRUS STRAIN OKA/MERCK LIVE ANTIGEN
     Dates: start: 20070321
  7. TAMSULOSIN [Concomitant]
     Active Substance: TAMSULOSIN
     Dates: start: 20100716
  8. GLUCOSAMINE [Concomitant]
     Active Substance: GLUCOSAMINE
  9. PRILOSEC [Suspect]
     Active Substance: OMEPRAZOLE MAGNESIUM
     Indication: GASTROOESOPHAGEAL REFLUX DISEASE
     Route: 065
     Dates: start: 20120829
  10. TERAZOSIN [Concomitant]
     Active Substance: TERAZOSIN HYDROCHLORIDE
     Dates: start: 20070125
  11. LIPITOR [Concomitant]
     Active Substance: ATORVASTATIN CALCIUM
     Dates: start: 20070319
  12. NIFEDIAC CC [Concomitant]
     Active Substance: NIFEDIPINE
     Dates: start: 20080820
  13. FLUTICASONE. [Concomitant]
     Active Substance: FLUTICASONE
  14. PRILOSEC [Suspect]
     Active Substance: OMEPRAZOLE MAGNESIUM
     Indication: GASTROOESOPHAGEAL REFLUX DISEASE
     Route: 048
     Dates: start: 20100101, end: 20141231
  15. AZOPT [Concomitant]
     Active Substance: BRINZOLAMIDE
     Dates: start: 20101110
  16. NEXIUM 24HR [Suspect]
     Active Substance: ESOMEPRAZOLE MAGNESIUM
     Indication: GASTROOESOPHAGEAL REFLUX DISEASE
     Route: 048
     Dates: start: 20140324, end: 20160131
  17. PRILOSEC [Suspect]
     Active Substance: OMEPRAZOLE MAGNESIUM
     Indication: GASTROOESOPHAGEAL REFLUX DISEASE
     Route: 048
  18. LISINOPRIL. [Concomitant]
     Active Substance: LISINOPRIL
     Dates: start: 20070124
  19. FLUTICASONE. [Concomitant]
     Active Substance: FLUTICASONE
     Dates: start: 20080806
  20. XIBROM [Concomitant]
     Active Substance: BROMFENAC SODIUM
     Dates: start: 20101101
  21. TYLENOL [Concomitant]
     Active Substance: ACETAMINOPHEN
  22. MELATONIN [Concomitant]
     Active Substance: MELATONIN
  23. PRAVASTATIN. [Concomitant]
     Active Substance: PRAVASTATIN
  24. PREVACID [Suspect]
     Active Substance: LANSOPRAZOLE
     Route: 065
  25. PREVACID [Suspect]
     Active Substance: LANSOPRAZOLE
     Route: 065
     Dates: start: 20100101, end: 20140324
  26. FINASTERIDE. [Concomitant]
     Active Substance: FINASTERIDE
     Dates: start: 20070209
  27. FINASTERIDE. [Concomitant]
     Active Substance: FINASTERIDE
  28. NIACIN. [Concomitant]
     Active Substance: NIACIN
  29. NIFEDIPINE. [Concomitant]
     Active Substance: NIFEDIPINE
  30. PRILOSEC OTC [Suspect]
     Active Substance: OMEPRAZOLE MAGNESIUM
     Indication: GASTROOESOPHAGEAL REFLUX DISEASE
     Route: 048
     Dates: start: 20100101, end: 20140324
  31. ASPIRIN. [Concomitant]
     Active Substance: ASPIRIN
  32. NEXIUM [Suspect]
     Active Substance: ESOMEPRAZOLE MAGNESIUM
     Route: 048
  33. PRILOSEC OTC [Suspect]
     Active Substance: OMEPRAZOLE MAGNESIUM
     Indication: GASTROOESOPHAGEAL REFLUX DISEASE
     Route: 048
  34. PRILOSEC [Suspect]
     Active Substance: OMEPRAZOLE MAGNESIUM
     Indication: GASTROOESOPHAGEAL REFLUX DISEASE
     Route: 048
     Dates: start: 20100101, end: 20140324
  35. RANITIDINE. [Concomitant]
     Active Substance: RANITIDINE
     Dates: start: 20070319
  36. IBUPROFEN. [Concomitant]
     Active Substance: IBUPROFEN
     Dates: start: 20101203

REACTIONS (2)
  - Chronic kidney disease [Not Recovered/Not Resolved]
  - Renal injury [Unknown]

NARRATIVE: CASE EVENT DATE: 20160830
